FAERS Safety Report 19781982 (Version 2)
Quarter: 2021Q3

REPORT INFORMATION
  Report Type: Spontaneous
  Country: US (occurrence: US)
  Receive Date: 20210902
  Receipt Date: 20210906
  Transmission Date: 20211014
  Serious: Yes (Hospitalization)
  Sender: FDA-Public Use
  Company Number: US-ROCHE-2903976

PATIENT
  Age: 56 Year
  Sex: Female

DRUGS (4)
  1. ESBRIET [Suspect]
     Active Substance: PIRFENIDONE
     Indication: INTERSTITIAL LUNG DISEASE
  2. ESBRIET [Suspect]
     Active Substance: PIRFENIDONE
     Indication: PULMONARY HYPERTENSION
     Dosage: ONGOING:YES
     Route: 048
     Dates: start: 20201005
  3. TYVASO [Concomitant]
     Active Substance: TREPROSTINIL
     Dosage: ONGOING: YES DOSE 7 BREATHSV  0.6MG/ML REFILL KIT (PAP) INHALATION
     Route: 011
     Dates: start: 202106
  4. TYVASO [Concomitant]
     Active Substance: TREPROSTINIL
     Dosage: STRENGTH 0.6MG/ML, INHALATIONS, 7 BRATEHS
     Dates: start: 20210701

REACTIONS (1)
  - Illness [Unknown]

NARRATIVE: CASE EVENT DATE: 20210618
